FAERS Safety Report 13096321 (Version 1)
Quarter: 2017Q1

REPORT INFORMATION
  Report Type: Spontaneous
  Country: FR (occurrence: FR)
  Receive Date: 20170109
  Receipt Date: 20170109
  Transmission Date: 20170428
  Serious: Yes (Other)
  Sender: FDA-Public Use
  Company Number: FR-009507513-1701FRA002679

PATIENT
  Age: 19 Year
  Sex: Male
  Weight: 70 kg

DRUGS (3)
  1. MAXILASE [Suspect]
     Active Substance: PANCRELIPASE
     Dosage: 1 DF, ONCE
     Route: 048
     Dates: start: 20161013, end: 20161013
  2. AERIUS [Suspect]
     Active Substance: DESLORATADINE
     Dosage: 1 DF, ONCE
     Route: 048
     Dates: start: 20161013, end: 20161013
  3. DOLIPRANE [Suspect]
     Active Substance: ACETAMINOPHEN
     Dosage: 5 G, ONCE
     Route: 048
     Dates: start: 20161013, end: 20161013

REACTIONS (1)
  - Altered state of consciousness [Recovered/Resolved]

NARRATIVE: CASE EVENT DATE: 20161013
